FAERS Safety Report 5910202-0 (Version None)
Quarter: 2008Q4

REPORT INFORMATION
  Report Type: 
  Country: None (occurrence: None)
  Receive Date: 20081007
  Receipt Date: 20071009
  Transmission Date: 20090506
  Serious: No
  Sender: FDA-Public Use
  Company Number: US-ASTRAZENECA-2007UW23471

PATIENT
  Age: 57 Year
  Sex: Female
  Weight: 80.7 kg

DRUGS (9)
  1. ARIMIDEX [Suspect]
     Indication: BREAST CANCER FEMALE
     Route: 048
     Dates: start: 20070701
  2. CRESTOR [Concomitant]
     Route: 048
  3. AVANDIA [Concomitant]
  4. LOTENSIN [Concomitant]
  5. FOLIC ACID [Concomitant]
  6. VITAMIN B6 [Concomitant]
  7. VITAMIN B-12 [Concomitant]
  8. CALCIUM WITH VITAMIN D [Concomitant]
  9. MULTI-VITAMIN [Concomitant]

REACTIONS (2)
  - GAIT DISTURBANCE [None]
  - PARAESTHESIA [None]
